FAERS Safety Report 18658825 (Version 6)
Quarter: 2022Q3

REPORT INFORMATION
  Report Type: Spontaneous
  Country: GB (occurrence: GB)
  Receive Date: 20201224
  Receipt Date: 20220915
  Transmission Date: 20221027
  Serious: Yes (Other)
  Sender: FDA-Public Use
  Company Number: GB-BIOVITRUM-2020GB7899

PATIENT
  Age: 41 Year
  Sex: Male

DRUGS (21)
  1. ORFADIN [Suspect]
     Active Substance: NITISINONE
     Indication: Alkaptonuria
     Dosage: 2 MG
     Dates: start: 2014
  2. ORFADIN [Suspect]
     Active Substance: NITISINONE
     Dosage: 2 MG
     Dates: start: 2015
  3. ORFADIN [Suspect]
     Active Substance: NITISINONE
     Dosage: 2 MG
     Dates: start: 2016
  4. COCODAMOL [Concomitant]
     Active Substance: ACETAMINOPHEN\CODEINE PHOSPHATE
     Dosage: 30/500MG ONE TABLET TDS
     Dates: start: 2014
  5. COCODAMOL [Concomitant]
     Active Substance: ACETAMINOPHEN\CODEINE PHOSPHATE
     Dates: start: 2015
  6. NAPROXEN [Concomitant]
     Active Substance: NAPROXEN
     Dosage: 250 MG
     Dates: start: 2014
  7. NAPROXEN [Concomitant]
     Active Substance: NAPROXEN
     Dates: start: 2015
  8. ATORVASTATIN [Concomitant]
     Active Substance: ATORVASTATIN
     Dates: start: 2015
  9. ATORVASTATIN [Concomitant]
     Active Substance: ATORVASTATIN
     Dosage: 80 MG
     Dates: start: 2016
  10. BISOPROLOL [Concomitant]
     Active Substance: BISOPROLOL
     Dates: start: 2015
  11. BISOPROLOL [Concomitant]
     Active Substance: BISOPROLOL
     Dosage: 5 MG
     Dates: start: 2016
  12. RAMIPRIL [Concomitant]
     Active Substance: RAMIPRIL
     Dates: start: 2015
  13. RAMIPRIL [Concomitant]
     Active Substance: RAMIPRIL
     Dosage: 10 MG
     Dates: start: 2016
  14. DIHYDROCODEINE [Concomitant]
     Active Substance: DIHYDROCODEINE
     Dosage: 30 MG
     Dates: start: 2016
  15. PREGABALIN [Concomitant]
     Active Substance: PREGABALIN
     Dosage: 25 MG
     Dates: start: 2016
  16. ASPIRIN [Concomitant]
     Active Substance: ASPIRIN
     Dosage: 75 MG
     Dates: start: 2016
  17. ACETAMINOPHEN [Concomitant]
     Active Substance: ACETAMINOPHEN
     Dosage: 500 MG
     Dates: start: 2016
  18. IBUPROFEN [Concomitant]
     Active Substance: IBUPROFEN
     Dosage: 400 MG
  19. OMEPRAZOLE [Concomitant]
     Active Substance: OMEPRAZOLE
     Dosage: 20 MG
     Dates: start: 2016
  20. CHOLECALCIFEROL [Concomitant]
     Active Substance: CHOLECALCIFEROL
     Dosage: 20 MG
     Dates: start: 2016
  21. SENNA LEAF [Concomitant]
     Active Substance: SENNA LEAF
     Dosage: 7.5 MG
     Dates: start: 2016

REACTIONS (4)
  - Lenticular opacities [Not Recovered/Not Resolved]
  - Cataract [Unknown]
  - Conjunctival oedema [Not Recovered/Not Resolved]
  - Amino acid level increased [Not Recovered/Not Resolved]

NARRATIVE: CASE EVENT DATE: 20140101
